FAERS Safety Report 9778370 (Version 3)
Quarter: 2014Q1

REPORT INFORMATION
  Report Type: Other
  Country: US (occurrence: US)
  Receive Date: 20131223
  Receipt Date: 20140210
  Transmission Date: 20141002
  Serious: Yes (Death, Other)
  Sender: FDA-Public Use
  Company Number: US-INCYTE CORPORATION-2013IN002778

PATIENT
  Age: 79 Year
  Sex: Female
  Weight: 62 kg

DRUGS (8)
  1. JAKAFI [Suspect]
     Indication: MYELOFIBROSIS
     Dosage: 10 MG DAILY
     Route: 048
     Dates: start: 20130805, end: 20130817
  2. CALCIUM [Concomitant]
  3. FUROSEMIDE [Concomitant]
  4. NORCO [Concomitant]
  5. OMEPRAZOLE [Concomitant]
  6. POTASSIUM CHLORIDE [Concomitant]
  7. INDERAL [Concomitant]
  8. ALDACTONE                          /00006201/ [Concomitant]

REACTIONS (1)
  - Gastrointestinal haemorrhage [Fatal]
